FAERS Safety Report 18246540 (Version 1)
Quarter: 2020Q3

REPORT INFORMATION
  Report Type: Spontaneous
  Country: DE (occurrence: DE)
  Receive Date: 20200909
  Receipt Date: 20200909
  Transmission Date: 20201103
  Serious: Yes (Hospitalization)
  Sender: FDA-Public Use
  Company Number: NVSC2020DE243081

PATIENT
  Age: 24 Month
  Sex: Male
  Weight: 15 kg

DRUGS (1)
  1. AMOXICILLIN. [Suspect]
     Active Substance: AMOXICILLIN
     Indication: OTITIS MEDIA
     Dosage: UNK UNK, TID (250 MG/5ML; 5?5?5?0 ML)
     Route: 048
     Dates: start: 20200206, end: 20200210

REACTIONS (1)
  - Hypochromic anaemia [Unknown]

NARRATIVE: CASE EVENT DATE: 20200210
